FAERS Safety Report 10216080 (Version 1)
Quarter: 2014Q2

REPORT INFORMATION
  Report Type: Spontaneous
  Country: US (occurrence: None)
  Receive Date: 20140603
  Receipt Date: 20140603
  Transmission Date: 20141212
  Serious: No
  Sender: FDA-Public Use
  Company Number: None

PATIENT
  Age: 26 Year
  Sex: Male
  Weight: 72.58 kg

DRUGS (1)
  1. METHYLPHENIDATE ER [Suspect]
     Indication: ANXIETY
     Dosage: 1 DOSE ONCE DAILY TAKEN BY MOUTH
     Route: 048
     Dates: start: 20140424, end: 20140524

REACTIONS (3)
  - Product substitution issue [None]
  - Drug effect decreased [None]
  - Therapeutic response changed [None]
